FAERS Safety Report 4870875-0 (Version None)
Quarter: 2006Q1

REPORT INFORMATION
  Report Type: 
  Country: None (occurrence: None)
  Receive Date: 20060103
  Receipt Date: 20051005
  Transmission Date: 20060701
  Serious: Yes (Hospitalization, Disabling)
  Sender: FDA-Public Use
  Company Number: US-MERCK-0510USA04111

PATIENT
  Age: 39 Year
  Sex: Male
  Weight: 120 kg

DRUGS (2)
  1. VIOXX [Suspect]
     Indication: BACK PAIN
     Route: 048
     Dates: start: 20030101, end: 20040101
  2. PRILOSEC [Concomitant]
     Route: 065

REACTIONS (2)
  - CARDIOVASCULAR DISORDER [None]
  - CHEST PAIN [None]
